FAERS Safety Report 12633980 (Version 1)
Quarter: 2016Q3

REPORT INFORMATION
  Report Type: Spontaneous
  Country: US (occurrence: None)
  Receive Date: 20160808
  Receipt Date: 20160808
  Transmission Date: 20161109
  Serious: Yes (Hospitalization)
  Sender: FDA-Public Use
  Company Number: None

PATIENT
  Age: 55 Year
  Sex: Female

DRUGS (1)
  1. GILENYA [Suspect]
     Active Substance: FINGOLIMOD HYDROCHLORIDE
     Indication: MULTIPLE SCLEROSIS
     Route: 048
     Dates: start: 20121206

REACTIONS (7)
  - Mental disorder [None]
  - Pain [None]
  - Sensory disturbance [None]
  - Sciatica [None]
  - Multiple sclerosis [None]
  - Disease complication [None]
  - Pharyngeal disorder [None]

NARRATIVE: CASE EVENT DATE: 20160724
